FAERS Safety Report 4491226-X (Version None)
Quarter: 2004Q3

REPORT INFORMATION
  Report Type: 
  Country: None (occurrence: None)
  Receive Date: 20040927
  Receipt Date: 20040805
  Transmission Date: 20050211
  Serious: No
  Sender: FDA-Public Use
  Company Number: USA040874700

PATIENT
  Age: 11 Year
  Sex: Male

DRUGS (2)
  1. STRATTERA [Suspect]
     Dates: start: 20040528
  2. BENADRYL [Concomitant]

REACTIONS (1)
  - INCREASED TENDENCY TO BRUISE [None]
